FAERS Safety Report 12715446 (Version 1)
Quarter: 2016Q3

REPORT INFORMATION
  Report Type: Spontaneous
  Country: GB (occurrence: GB)
  Receive Date: 20160906
  Receipt Date: 20160906
  Transmission Date: 20161109
  Serious: Yes (Disabling)
  Sender: FDA-Public Use
  Company Number: GB-009507513-1609GBR000660

PATIENT
  Age: 66 Year
  Sex: Male
  Weight: 94 kg

DRUGS (5)
  1. EZETIMIBE. [Suspect]
     Active Substance: EZETIMIBE
     Dosage: UNK
     Dates: start: 20160729, end: 201608
  2. ATORVASTATIN [Concomitant]
     Active Substance: ATORVASTATIN
     Dosage: 1 DF, QD
     Dates: start: 20160629, end: 20160729
  3. ROSUVASTATIN. [Concomitant]
     Active Substance: ROSUVASTATIN
     Dosage: 1 DF, AT NIGHT
     Dates: start: 20160119, end: 20160629
  4. WARFARIN SODIUM. [Concomitant]
     Active Substance: WARFARIN SODIUM
     Indication: ENDOCARDITIS BACTERIAL
     Dosage: AS DIRECTED
     Dates: start: 20160119
  5. MIGRALEVE (ACETAMINOPHEN (+) BUCLIZINE HYDROCHLORIDE (+) CODEINE PHOSP [Concomitant]
     Dosage: TAKE 2 TABLETS AS REQUIRED MAX TWO IN TWENTY FO...
     Dates: start: 20160119

REACTIONS (2)
  - Feeling abnormal [Recovered/Resolved]
  - Panic attack [Recovered/Resolved]

NARRATIVE: CASE EVENT DATE: 20160815
